FAERS Safety Report 17109435 (Version 2)
Quarter: 2019Q4

REPORT INFORMATION
  Report Type: Spontaneous
  Country: ES (occurrence: ES)
  Receive Date: 20191204
  Receipt Date: 20191230
  Transmission Date: 20200122
  Serious: Yes (Other)
  Sender: FDA-Public Use
  Company Number: ES-LUPIN PHARMACEUTICALS INC.-2019-07963

PATIENT
  Age: 71 Year
  Sex: Female

DRUGS (3)
  1. ENALAPRIL [Concomitant]
     Active Substance: ENALAPRIL
     Indication: HYPERTENSION
     Dosage: 5 MILLIGRAM, QD
     Route: 065
  2. ALPRAZOLAM. [Concomitant]
     Active Substance: ALPRAZOLAM
     Indication: ANXIETY DISORDER
     Dosage: UNK UNK, QD, AT NIGHT
     Route: 065
  3. SERTRALINE [Suspect]
     Active Substance: SERTRALINE HYDROCHLORIDE
     Indication: PERSISTENT DEPRESSIVE DISORDER
     Dosage: 50 MILLIGRAM, QD, FOR MORE THAN THREE YEARS
     Route: 065

REACTIONS (5)
  - Headache [Recovering/Resolving]
  - Dysarthria [Recovered/Resolved]
  - Dysmetria [Recovering/Resolving]
  - Dystonia [Recovering/Resolving]
  - Torticollis [Recovering/Resolving]
